FAERS Safety Report 18139078 (Version 1)
Quarter: 2020Q3

REPORT INFORMATION
  Report Type: Spontaneous
  Country: PT (occurrence: PT)
  Receive Date: 20200812
  Receipt Date: 20200812
  Transmission Date: 20201103
  Serious: Yes (Other)
  Sender: FDA-Public Use
  Company Number: NVSC2020PT220672

PATIENT
  Age: 66 Year
  Sex: Female

DRUGS (1)
  1. RISPERIDONA SANDOZ 3 MG COMPRIMIDOS [Suspect]
     Active Substance: RISPERIDONE
     Indication: PSYCHOTIC DISORDER
     Dosage: 9 MG, QD
     Route: 048
     Dates: start: 202007, end: 202007

REACTIONS (4)
  - Product substitution issue [Recovered/Resolved]
  - Somnolence [Recovered/Resolved]
  - Muscle rigidity [Recovered/Resolved]
  - Extrapyramidal disorder [Recovered/Resolved]

NARRATIVE: CASE EVENT DATE: 202007
